FAERS Safety Report 26138637 (Version 1)
Quarter: 2025Q4

REPORT INFORMATION
  Report Type: Spontaneous
  Country: JP (occurrence: JP)
  Receive Date: 20251210
  Receipt Date: 20251210
  Transmission Date: 20260117
  Serious: Yes (Other)
  Sender: SANOFI AVENTIS
  Company Number: JP-OTSUKA-2019_011690

PATIENT
  Age: 24 Year
  Sex: Female

DRUGS (24)
  1. RIFAMPIN [Suspect]
     Active Substance: RIFAMPIN
     Indication: Pulmonary tuberculosis
     Dosage: UNK
     Route: 065
     Dates: start: 201805, end: 201809
  2. ISONIAZID [Suspect]
     Active Substance: ISONIAZID
     Indication: Pulmonary tuberculosis
     Dosage: UNK
     Route: 048
     Dates: start: 201805, end: 201809
  3. PYRAZINAMIDE [Suspect]
     Active Substance: PYRAZINAMIDE
     Indication: Pulmonary tuberculosis
     Dosage: UNK
     Route: 048
     Dates: start: 201805, end: 201807
  4. PYRAZINAMIDE [Suspect]
     Active Substance: PYRAZINAMIDE
     Dosage: 1350 MG, QD
     Route: 048
     Dates: start: 20180920, end: 20181106
  5. ETHIONAMIDE [Suspect]
     Active Substance: ETHIONAMIDE
     Indication: Tuberculosis
     Dosage: 600 MG, QD
     Route: 048
     Dates: start: 20180920, end: 20181113
  6. LINEZOLID [Suspect]
     Active Substance: LINEZOLID
     Indication: Tuberculosis
     Dosage: 100 MG, QD
     Route: 048
     Dates: start: 20180920, end: 20190108
  7. LANSOPRAZOLE [Suspect]
     Active Substance: LANSOPRAZOLE
     Indication: Nausea
     Dosage: 15 MG, QD
     Route: 048
     Dates: start: 20180929, end: 20181217
  8. HYDROCORTISONE BUTYRATE [Suspect]
     Active Substance: HYDROCORTISONE BUTYRATE
     Indication: Miliaria
     Dosage: UNK
     Route: 061
     Dates: start: 20181016, end: 20181016
  9. DOMPERIDONE [Suspect]
     Active Substance: DOMPERIDONE
     Indication: Nausea
     Dosage: 10 MG, QD
     Route: 048
     Dates: start: 20181004, end: 20181004
  10. METOCLOPRAMIDE [Suspect]
     Active Substance: METOCLOPRAMIDE
     Indication: Nausea
     Dosage: 15 MG, QD
     Route: 048
     Dates: start: 20181004, end: 20190218
  11. DELAMANID [Suspect]
     Active Substance: DELAMANID
     Indication: Pulmonary tuberculosis
     Dosage: 200 MG, QD
     Route: 048
     Dates: start: 20180928, end: 20190129
  12. REBAMIPIDE [Suspect]
     Active Substance: REBAMIPIDE
     Indication: Dysmenorrhoea
     Dosage: 100 MG, QD
     Route: 048
     Dates: start: 20180929, end: 20180930
  13. ETHAMBUTOL HYDROCHLORIDE [Suspect]
     Active Substance: ETHAMBUTOL HYDROCHLORIDE
     Indication: Pulmonary tuberculosis
     Dosage: UNK
     Dates: start: 201805, end: 201807
  14. KANAMYCIN [Suspect]
     Active Substance: KANAMYCIN A SULFATE
     Indication: Tuberculosis
     Dosage: 750 MG, QD
     Route: 030
     Dates: start: 20180920, end: 20190129
  15. CYCLOSERINE [Suspect]
     Active Substance: CYCLOSERINE
     Indication: Tuberculosis
     Dosage: 500 MG, QD
     Route: 048
     Dates: start: 20180920, end: 20190129
  16. LOXOPROFEN [Suspect]
     Active Substance: LOXOPROFEN
     Indication: Dysmenorrhoea
     Dosage: 60 MG, QD
     Route: 048
     Dates: start: 20180929, end: 20180930
  17. LOXOPROFEN [Suspect]
     Active Substance: LOXOPROFEN
     Indication: Neuropathy peripheral
     Dosage: 180 MG, QD
     Route: 048
     Dates: start: 20190205
  18. TEPRENONE [Concomitant]
     Active Substance: TEPRENONE
     Indication: Nausea
     Dosage: 150 MG, QD
     Route: 048
     Dates: start: 20181218, end: 20190218
  19. DAIMEDIN [BENFOTIAMINE;CYANOCOBALAMIN;PYRIDOXINE HYDROCHLORIDE] [Concomitant]
     Indication: Product used for unknown indication
     Dosage: 3 DF, QD
     Route: 048
     Dates: start: 20181226
  20. DAIMEDIN [BENFOTIAMINE;CYANOCOBALAMIN;PYRIDOXINE HYDROCHLORIDE] [Concomitant]
     Dosage: 4 DF, QD
     Route: 048
     Dates: start: 20181226
  21. LYRICA [Concomitant]
     Active Substance: PREGABALIN
     Indication: Neuropathy peripheral
     Dosage: 150 MG, QD
     Route: 048
     Dates: start: 20190108
  22. LYRICA [Concomitant]
     Active Substance: PREGABALIN
     Dosage: 100 MG, QD
     Route: 048
  23. CYMBALTA [Concomitant]
     Active Substance: DULOXETINE HYDROCHLORIDE
     Indication: Neuropathy peripheral
     Dosage: 20 MG, QD
     Route: 048
     Dates: start: 20190130
  24. CYMBALTA [Concomitant]
     Active Substance: DULOXETINE HYDROCHLORIDE
     Dosage: 40 MG, QD
     Route: 048

REACTIONS (6)
  - Neuropathy peripheral [Not Recovered/Not Resolved]
  - Gamma-glutamyltransferase increased [Recovered/Resolved]
  - Tinnitus [Not Recovered/Not Resolved]
  - Nausea [Recovered/Resolved]
  - Hyperuricaemia [Recovered/Resolved]
  - Anaemia [Recovered/Resolved]

NARRATIVE: CASE EVENT DATE: 20180928
